FAERS Safety Report 8608535-2 (Version None)
Quarter: 2012Q3

REPORT INFORMATION
  Report Type: 
  Country: None (occurrence: None)
  Receive Date: 20120809
  Receipt Date: 20120809
  Transmission Date: 20120928
  Serious: Yes (Other)
  Sender: FDA-Public Use
  Company Number: None

PATIENT
  Age: 12 Year
  Sex: Female
  Weight: 70.3075 kg

DRUGS (1)
  1. GEODON [Suspect]
     Indication: MOOD SWINGS
     Dosage: 40MG START WITH 1 PILL PO
     Route: 048
     Dates: start: 20120727, end: 20120806

REACTIONS (3)
  - URTICARIA [None]
  - PAIN [None]
  - PRURITUS [None]
